FAERS Safety Report 7656407-2 (Version None)
Quarter: 2011Q3

REPORT INFORMATION
  Report Type: 
  Country: None (occurrence: None)
  Receive Date: 20110804
  Receipt Date: 20110729
  Transmission Date: 20111222
  Serious: Yes (Other)
  Sender: FDA-Public Use
  Company Number: GB-GLAXOSMITHKLINE-B0716953A

PATIENT
  Age: 16 Year
  Sex: Male
  Weight: 50.1 kg

DRUGS (9)
  1. FLUTICASONE PROPIONATE/SALMETEROL [Suspect]
     Route: 055
     Dates: start: 20110105
  2. ATROVENT [Concomitant]
     Route: 055
     Dates: start: 20110105, end: 20110329
  3. FLUTICASONE PROPIONATE/SALMETEROL [Suspect]
     Route: 055
     Dates: start: 20080214
  4. UNKNOWN [Concomitant]
     Route: 061
     Dates: start: 20060617
  5. UNKNOWN [Concomitant]
     Route: 061
  6. FLUTICASONE PROPIONATE/SALMETEROL [Suspect]
     Route: 055
     Dates: start: 20070917
  7. EPIPEN [Concomitant]
     Dates: start: 20100311
  8. ALBUTEROL [Concomitant]
     Route: 055
     Dates: start: 20100311
  9. FLUTICASONE PROPIONATE/SALMETEROL [Suspect]
     Route: 055
     Dates: start: 20090706

REACTIONS (1)
  - ACTH STIMULATION TEST ABNORMAL [None]
